FAERS Safety Report 7030188-8 (Version None)
Quarter: 2010Q4

REPORT INFORMATION
  Report Type: 
  Country: None (occurrence: None)
  Receive Date: 20101006
  Receipt Date: 20100924
  Transmission Date: 20110411
  Serious: Yes (Death, Hospitalization, Other)
  Sender: FDA-Public Use
  Company Number: GB-TEVA-249792ISR

PATIENT
  Age: 75 Year
  Sex: Female

DRUGS (2)
  1. AMITRIPTYLINE [Suspect]
     Indication: ABDOMINAL PAIN UPPER
  2. AMITRIPTYLINE [Suspect]
     Indication: VOMITING

REACTIONS (5)
  - CONSTIPATION [None]
  - DECREASED APPETITE [None]
  - HEPATIC FAILURE [None]
  - JAUNDICE CHOLESTATIC [None]
  - RENAL FAILURE [None]
